FAERS Safety Report 8083997-0 (Version None)
Quarter: 2012Q1

REPORT INFORMATION
  Report Type: 
  Country: None (occurrence: None)
  Receive Date: 20120128
  Receipt Date: 20110107
  Transmission Date: 20120608
  Serious: No
  Sender: FDA-Public Use
  Company Number: US-ABBOTT-11P-163-0696269-00

PATIENT
  Sex: Male
  Weight: 86.26 kg

DRUGS (7)
  1. HUMIRA [Suspect]
     Indication: RHEUMATOID ARTHRITIS
     Route: 058
     Dates: start: 20020101
  2. LEXAPRO [Concomitant]
     Indication: DEPRESSION
  3. HUMIRA [Suspect]
     Route: 058
  4. ZOLPIDEM [Concomitant]
     Indication: SLEEP DISORDER THERAPY
  5. PANTOPRAZOLE [Concomitant]
     Indication: GASTRIC DISORDER
  6. AMLODIPINE [Concomitant]
     Indication: HYPERTENSION
  7. METOPROLOL TARTRATE [Concomitant]
     Indication: HYPERTENSION

REACTIONS (3)
  - NASOPHARYNGITIS [None]
  - OROPHARYNGEAL PAIN [None]
  - DRUG DOSE OMISSION [None]
